FAERS Safety Report 8596941-4 (Version None)
Quarter: 2012Q3

REPORT INFORMATION
  Report Type: 
  Country: None (occurrence: None)
  Receive Date: 20120815
  Receipt Date: 20120803
  Transmission Date: 20120928
  Serious: Yes (Hospitalization)
  Sender: FDA-Public Use
  Company Number: DE-AMGEN-UK244935

PATIENT
  Age: 69 Year
  Sex: Male

DRUGS (15)
  1. CINACALCET HYDROCHLORIDE [Suspect]
     Indication: HYPERPARATHYROIDISM SECONDARY
     Dosage: UNK UNK, QD
     Route: 048
     Dates: start: 20070126
  2. ASPIRIN [Concomitant]
     Dosage: UNK UNK, QD
     Dates: start: 20060824
  3. CALCIUM ACETATE [Concomitant]
     Dosage: 475 MG, UNK
     Dates: start: 20060203
  4. ESOMEPRAZOLE MAGNESIUM [Concomitant]
     Dosage: 20 MG, UNK
     Dates: start: 20050814
  5. ALUMINUM HYDROXIDE GEL [Concomitant]
     Dosage: UNK UNK, UNK
     Dates: start: 20050803
  6. PREGABALIN [Concomitant]
     Dosage: 75 MG, UNK
     Dates: start: 20050803
  7. MAGNESIUM HYDROXIDE TAB [Concomitant]
     Dosage: .75 G, UNK
     Dates: start: 20051209
  8. CLARITHROMYCIN [Concomitant]
     Dosage: UNK UNK, UNK
     Dates: start: 20050310
  9. MOLSIDOMINE [Concomitant]
     Dosage: 2.5 MG, UNK
     Dates: start: 20050603
  10. SIMVASTATIN [Concomitant]
     Dosage: 10 MG, UNK
     Dates: start: 20050806
  11. ENALAPRIL MALEATE [Concomitant]
     Dosage: UNK UNK, QD
     Route: 048
     Dates: start: 20050803
  12. DIMETINDENE MALEATE [Concomitant]
     Dosage: UNK UNK, QD
     Dates: start: 20050803
  13. SEVELAMER HCL [Concomitant]
     Dosage: 800 MG, UNK
     Dates: start: 20060301
  14. CLOPIDOGREL BISULFATE [Concomitant]
     Dosage: UNK UNK, QD
     Dates: start: 20061002
  15. OMEPRAZOLE [Concomitant]
     Dosage: 20 MG, UNK
     Dates: start: 20061106

REACTIONS (1)
  - OPTIC NEURITIS [None]
